FAERS Safety Report 7040449-4 (Version None)
Quarter: 2010Q4

REPORT INFORMATION
  Report Type: 
  Country: None (occurrence: None)
  Receive Date: 20101012
  Receipt Date: 20101005
  Transmission Date: 20110411
  Serious: Yes (Other)
  Sender: FDA-Public Use
  Company Number: ES-AMGEN-QUU414319

PATIENT
  Sex: Female
  Weight: 100 kg

DRUGS (2)
  1. NPLATE [Suspect]
     Indication: IDIOPATHIC THROMBOCYTOPENIC PURPURA
     Route: 042
     Dates: start: 20100218, end: 20100801
  2. DEXAMETHASONE [Concomitant]

REACTIONS (6)
  - BLOOD SMEAR TEST ABNORMAL [None]
  - HAEMORRHAGE [None]
  - MOUTH HAEMORRHAGE [None]
  - MYELOFIBROSIS [None]
  - THERAPEUTIC RESPONSE DECREASED [None]
  - THROMBOCYTOPENIA [None]
